FAERS Safety Report 14566284 (Version 1)
Quarter: 2018Q1

REPORT INFORMATION
  Report Type: Spontaneous
  Country: US (occurrence: US)
  Receive Date: 20180223
  Receipt Date: 20180223
  Transmission Date: 20180509
  Serious: No
  Sender: FDA-Public Use
  Company Number: US-PFIZER INC-2017214039

PATIENT
  Age: 61 Year
  Sex: Male

DRUGS (12)
  1. LYRICA [Suspect]
     Active Substance: PREGABALIN
     Indication: LUMBAR RADICULOPATHY
  2. ZESTRIL [Concomitant]
     Active Substance: LISINOPRIL
     Dosage: 2.5 MG (1 TABLET), DAILY
     Route: 048
     Dates: start: 20170509
  3. PLAVIX [Concomitant]
     Active Substance: CLOPIDOGREL BISULFATE
     Dosage: 75 MG (1 TABLET), DAILY
     Route: 048
     Dates: start: 20170509
  4. PROTONIX [Concomitant]
     Active Substance: PANTOPRAZOLE SODIUM
     Dosage: 40 MG (1 TABLET), DAILY
     Route: 048
     Dates: start: 20160121
  5. LYRICA [Suspect]
     Active Substance: PREGABALIN
     Indication: FIBROMYALGIA
     Dosage: 150 MG (1 CAPSULE), THREE TIMES DAILY
     Route: 048
     Dates: start: 20170510, end: 20170511
  6. BIOTIN [Concomitant]
     Active Substance: BIOTIN
     Dosage: 5 MG (1 CAPSULE), DAILY
     Route: 048
     Dates: start: 20150722
  7. ISORDIL [Concomitant]
     Active Substance: ISOSORBIDE DINITRATE
     Dosage: 10 MG (1 TABLET), TWICE DAILY
     Route: 048
     Dates: start: 20170125
  8. CRESTOR [Concomitant]
     Active Substance: ROSUVASTATIN CALCIUM
     Dosage: 5 MG (1 TABLET), DAILY (AT BEDTIME)
     Dates: start: 20170509
  9. LYRICA [Suspect]
     Active Substance: PREGABALIN
     Indication: POST HERPETIC NEURALGIA
     Dosage: 150 MG (1 CAPSULE), THREE TIMES DAILY
     Route: 048
     Dates: start: 20170511
  10. LYRICA [Suspect]
     Active Substance: PREGABALIN
     Indication: DIABETIC NEUROPATHY
  11. GLUCOPHAGE [Concomitant]
     Active Substance: METFORMIN HYDROCHLORIDE
     Dosage: 500 MG (1 TABLET), TWICE DAILY (WITH MEALS)
     Route: 048
     Dates: start: 20170509
  12. PRINIVIL [Concomitant]
     Active Substance: LISINOPRIL
     Dosage: 2.5 MG (1 TABLET), DAILY
     Route: 048
     Dates: start: 20170509

REACTIONS (2)
  - Nausea [Unknown]
  - Stress [Unknown]
